FAERS Safety Report 13603604 (Version 5)
Quarter: 2018Q2

REPORT INFORMATION
  Report Type: Spontaneous
  Country: CH (occurrence: CH)
  Receive Date: 20170601
  Receipt Date: 20180411
  Transmission Date: 20180711
  Serious: Yes (Hospitalization, Other)
  Sender: FDA-Public Use
  Company Number: CH-AMGEN-CHESP2017080368

PATIENT
  Age: 66 Year
  Sex: Male
  Weight: 74 kg

DRUGS (7)
  1. KYPROLIS [Suspect]
     Active Substance: CARFILZOMIB
     Dosage: UNK
     Route: 042
     Dates: start: 20170710, end: 201707
  2. REVLIMID [Concomitant]
     Active Substance: LENALIDOMIDE
     Indication: PLASMA CELL MYELOMA
     Dosage: UNK
     Dates: start: 20170612, end: 201707
  3. DEXAMETHASONE. [Concomitant]
     Active Substance: DEXAMETHASONE
     Dosage: 20 MG, UNK (DAY 8 AND 9)
     Dates: start: 20170522, end: 20170523
  4. KYPROLIS [Suspect]
     Active Substance: CARFILZOMIB
     Dosage: UNK
     Route: 042
     Dates: start: 20170612, end: 2017
  5. DEXAMETHASONE. [Concomitant]
     Active Substance: DEXAMETHASONE
     Indication: PLASMA CELL MYELOMA
     Dosage: 20 MG, UNK (DAY 1 AND 2)
     Dates: start: 20170515, end: 20170516
  6. KYPROLIS [Suspect]
     Active Substance: CARFILZOMIB
     Indication: PLASMA CELL MYELOMA
     Dosage: 20 MG/M2, UNK (DAY 1 AND 2)
     Route: 042
     Dates: start: 20170515, end: 20170516
  7. KYPROLIS [Suspect]
     Active Substance: CARFILZOMIB
     Dosage: 56 MG/M2, UNK (DAY 8 AND 9)
     Route: 042
     Dates: start: 20170522, end: 20170523

REACTIONS (10)
  - Plasma cell myeloma [Unknown]
  - Anaemia [Unknown]
  - Cytokine storm [Recovered/Resolved]
  - Mitral valve incompetence [Unknown]
  - Tricuspid valve incompetence [Unknown]
  - Diastolic dysfunction [Unknown]
  - Thrombocytopenia [Unknown]
  - N-terminal prohormone brain natriuretic peptide increased [Unknown]
  - Acute kidney injury [Recovered/Resolved]
  - Pulmonary valve incompetence [Unknown]

NARRATIVE: CASE EVENT DATE: 201705
